FAERS Safety Report 7186368-4 (Version None)
Quarter: 2010Q4

REPORT INFORMATION
  Report Type: 
  Country: None (occurrence: None)
  Receive Date: 20101222
  Receipt Date: 20101216
  Transmission Date: 20110411
  Serious: Yes (Hospitalization)
  Sender: FDA-Public Use
  Company Number: US-US-EMD SERONO, INC.-7024703

PATIENT
  Sex: Male
  Weight: 54 kg

DRUGS (5)
  1. REBIF [Suspect]
     Indication: RELAPSING-REMITTING MULTIPLE SCLEROSIS
     Dates: start: 20041219, end: 20101001
  2. TRAZODONE HCL [Concomitant]
     Indication: INSOMNIA
     Dates: start: 20060520
  3. GABAPENTIN [Concomitant]
     Indication: PARAESTHESIA
     Dates: start: 20100915
  4. WELLBUTRIN XL [Concomitant]
     Indication: ANXIETY
     Dates: start: 20090317
  5. WELLBUTRIN XL [Concomitant]
     Indication: DEPRESSION

REACTIONS (3)
  - NAUSEA [None]
  - SOFT TISSUE INFECTION [None]
  - VOMITING [None]
